FAERS Safety Report 8443071 (Version 3)
Quarter: 2014Q1

REPORT INFORMATION
  Report Type: Spontaneous
  Country: US (occurrence: US)
  Receive Date: 20120306
  Receipt Date: 20140303
  Transmission Date: 20141002
  Serious: Yes (Other)
  Sender: FDA-Public Use
  Company Number: US-ROCHE-1020248

PATIENT
  Age: 23 Year
  Sex: Female
  Weight: 57.66 kg

DRUGS (2)
  1. ACCUTANE [Suspect]
     Indication: ACNE
     Route: 065
     Dates: start: 200503
  2. ACCUTANE [Suspect]
     Route: 065
     Dates: start: 200504, end: 200509

REACTIONS (6)
  - Colitis ulcerative [Unknown]
  - Irritable bowel syndrome [Unknown]
  - Lip dry [Unknown]
  - Xerosis [Unknown]
  - Blood triglycerides increased [Unknown]
  - Back pain [Unknown]
